FAERS Safety Report 16578522 (Version 1)
Quarter: 2019Q3

REPORT INFORMATION
  Report Type: Spontaneous
  Country: DE (occurrence: DE)
  Receive Date: 20190716
  Receipt Date: 20190716
  Transmission Date: 20191004
  Serious: Yes (Life-Threatening, Disabling, Other)
  Sender: FDA-Public Use
  Company Number: DE-BRISTOL-MYERS SQUIBB COMPANY-BMS-2019-061680

PATIENT
  Age: 93 Year
  Sex: Female
  Weight: 56 kg

DRUGS (1)
  1. ELIQUIS [Suspect]
     Active Substance: APIXABAN
     Indication: CEREBROVASCULAR ACCIDENT PROPHYLAXIS
     Dosage: 2.5 MILLIGRAM, BID
     Route: 048
     Dates: start: 20190326, end: 20190626

REACTIONS (5)
  - Somnolence [Recovering/Resolving]
  - Oedema peripheral [Recovering/Resolving]
  - Erythema [Recovering/Resolving]
  - Speech disorder [Recovering/Resolving]
  - Mental impairment [Recovering/Resolving]

NARRATIVE: CASE EVENT DATE: 20190426
